FAERS Safety Report 25949649 (Version 1)
Quarter: 2025Q4

REPORT INFORMATION
  Report Type: Spontaneous
  Country: CL (occurrence: CL)
  Receive Date: 20251022
  Receipt Date: 20251022
  Transmission Date: 20260117
  Serious: Yes (Death)
  Sender: PFIZER
  Company Number: CL-PFIZER INC-PV202500109479

PATIENT
  Age: 41 Year
  Sex: Female

DRUGS (1)
  1. LORBRENA [Suspect]
     Active Substance: LORLATINIB
     Indication: Lung neoplasm malignant
     Dosage: 100 MG

REACTIONS (2)
  - Pneumonia [Fatal]
  - Pleural effusion [Fatal]
